FAERS Safety Report 9915140 (Version 1)
Quarter: 2014Q1

REPORT INFORMATION
  Report Type: Spontaneous
  Country: US (occurrence: US)
  Receive Date: 20140220
  Receipt Date: 20140220
  Transmission Date: 20141002
  Serious: Yes (Disabling)
  Sender: FDA-Public Use
  Company Number: US-ELI_LILLY_AND_COMPANY-US201402004454

PATIENT
  Sex: Female

DRUGS (7)
  1. HUMALOG 25% LISPRO, 75% NPL [Suspect]
     Indication: TYPE 2 DIABETES MELLITUS
     Route: 065
  2. HUMULIN NPH [Suspect]
     Indication: TYPE 2 DIABETES MELLITUS
     Route: 065
  3. METFORMIN [Concomitant]
  4. SIMCOR                             /00848101/ [Concomitant]
  5. OMEPRAZOLE [Concomitant]
  6. ASPIRIN [Concomitant]
  7. FOLIC ACID [Concomitant]

REACTIONS (4)
  - Neuropathic arthropathy [Not Recovered/Not Resolved]
  - Blood glucose decreased [Recovered/Resolved]
  - Infection [Unknown]
  - Malaise [Unknown]
